FAERS Safety Report 4906754-X (Version None)
Quarter: 2006Q1

REPORT INFORMATION
  Report Type: 
  Country: None (occurrence: None)
  Receive Date: 20060209
  Receipt Date: 20051006
  Transmission Date: 20060701
  Serious: Yes (Other)
  Sender: FDA-Public Use
  Company Number: US-ROCHE-420518

PATIENT
  Age: 29 Year
  Sex: Female

DRUGS (3)
  1. ACCUTANE [Suspect]
     Route: 065
     Dates: start: 20050215, end: 20050515
  2. AMNESTEEM [Suspect]
     Route: 065
     Dates: start: 20040912, end: 20050215
  3. ORAL CONTRACEPTIVE PILL [Concomitant]
     Indication: CONTRACEPTION
     Route: 048

REACTIONS (3)
  - DRUG EXPOSURE DURING PREGNANCY [None]
  - NO ADVERSE EFFECT [None]
  - PREGNANCY [None]
